FAERS Safety Report 15281144 (Version 4)
Quarter: 2018Q4

REPORT INFORMATION
  Report Type: Spontaneous
  Country: JP (occurrence: JP)
  Receive Date: 20180815
  Receipt Date: 20181010
  Transmission Date: 20190204
  Serious: Yes (Hospitalization)
  Sender: FDA-Public Use
  Company Number: JP-EISAI MEDICAL RESEARCH-EC-2018-043840

PATIENT
  Sex: Female
  Weight: 3.03 kg

DRUGS (8)
  1. FYCOMPA [Suspect]
     Active Substance: PERAMPANEL
     Route: 064
     Dates: start: 20180629, end: 201807
  2. RIVOTRIL [Concomitant]
     Active Substance: CLONAZEPAM
     Indication: EXPOSURE VIA BREAST MILK
  3. FYCOMPA [Suspect]
     Active Substance: PERAMPANEL
     Dosage: EXCEEDED 12 MG
     Route: 064
     Dates: start: 201807, end: 201807
  4. RIVOTRIL [Concomitant]
     Active Substance: CLONAZEPAM
     Indication: EXPOSURE DURING PREGNANCY
     Route: 064
     Dates: start: 20171013
  5. FYCOMPA [Suspect]
     Active Substance: PERAMPANEL
     Indication: EXPOSURE VIA BREAST MILK
     Route: 064
     Dates: start: 20171117, end: 20171214
  6. FYCOMPA [Suspect]
     Active Substance: PERAMPANEL
     Route: 064
     Dates: start: 20171215, end: 20180628
  7. FYCOMPA [Suspect]
     Active Substance: PERAMPANEL
     Route: 063
     Dates: start: 201807
  8. FYCOMPA [Suspect]
     Active Substance: PERAMPANEL
     Indication: EXPOSURE DURING PREGNANCY
     Route: 064
     Dates: start: 20171027, end: 20171116

REACTIONS (5)
  - Exposure via breast milk [Not Recovered/Not Resolved]
  - Poor sucking reflex [Recovered/Resolved]
  - Hypopnoea [Recovered/Resolved]
  - Anticonvulsant drug level increased [Recovered/Resolved]
  - Exposure during pregnancy [Recovered/Resolved]

NARRATIVE: CASE EVENT DATE: 20180723
